FAERS Safety Report 5527665-5 (Version None)
Quarter: 2007Q4

REPORT INFORMATION
  Report Type: 
  Country: None (occurrence: None)
  Receive Date: 20071123
  Receipt Date: 20071116
  Transmission Date: 20080405
  Serious: Yes (Disabling)
  Sender: FDA-Public Use
  Company Number: S07-FRA-05890-01

PATIENT
  Age: 63 Year
  Sex: Male

DRUGS (4)
  1. AOTAL (ACAMPROSATE) [Suspect]
     Indication: ALCOHOLISM
     Dosage: 666 MG TID PO
     Route: 048
     Dates: start: 20070902
  2. CRESTPR (ROSUVASTATIN) [Concomitant]
  3. EFFEXOR [Concomitant]
  4. ZOLPIDEM TARTRATE [Concomitant]

REACTIONS (1)
  - AGEUSIA [None]
